FAERS Safety Report 21540018 (Version 3)
Quarter: 2022Q4

REPORT INFORMATION
  Report Type: Report from Study
  Country: US (occurrence: US)
  Receive Date: 20221102
  Receipt Date: 20221226
  Transmission Date: 20230112
  Serious: No
  Sender: FDA-Public Use
  Company Number: US-NOVARTISTESTPH-NVSC2022US243729

PATIENT
  Age: 27 Year
  Sex: Female

DRUGS (5)
  1. VIJOICE [Suspect]
     Active Substance: ALPELISIB
     Indication: Product used for unknown indication
     Dosage: 200 MG, QD
     Route: 048
     Dates: start: 20220218
  2. VIJOICE [Suspect]
     Active Substance: ALPELISIB
     Dosage: 250 MG, QD
     Route: 048
     Dates: start: 202206
  3. VIJOICE [Suspect]
     Active Substance: ALPELISIB
     Dosage: 150 MG, QD
     Route: 048
  4. VIJOICE [Suspect]
     Active Substance: ALPELISIB
     Dosage: 200 MG, QD (4 50 MG TABLETS)
     Route: 048
     Dates: start: 202206
  5. VIJOICE [Suspect]
     Active Substance: ALPELISIB
     Dosage: 100 MG, QD (50MG 2 TABLETS)
     Route: 048

REACTIONS (3)
  - Dysphagia [Unknown]
  - Alopecia [Unknown]
  - Drug intolerance [Unknown]

NARRATIVE: CASE EVENT DATE: 20221021
